FAERS Safety Report 6870857-3 (Version None)
Quarter: 2010Q3

REPORT INFORMATION
  Report Type: 
  Country: None (occurrence: None)
  Receive Date: 20100723
  Receipt Date: 20100712
  Transmission Date: 20110219
  Serious: Yes (Other)
  Sender: FDA-Public Use
  Company Number: PHHY2010DE47079

PATIENT
  Sex: Female

DRUGS (1)
  1. DIOVAN [Suspect]
     Dosage: 160 MG SINGLE DOSE
     Route: 048

REACTIONS (3)
  - ALLERGY TO CHEMICALS [None]
  - ATRIAL FLUTTER [None]
  - THERAPY REGIMEN CHANGED [None]
